FAERS Safety Report 5673378-9 (Version None)
Quarter: 2008Q1

REPORT INFORMATION
  Report Type: 
  Country: None (occurrence: None)
  Receive Date: 20080319
  Receipt Date: 20080128
  Transmission Date: 20080703
  Serious: Yes (Death)
  Sender: FDA-Public Use
  Company Number: US-TYCO HEALTHCARE/MALLINCKRODT-T200800356

PATIENT

DRUGS (5)
  1. PAMELOR [Suspect]
     Route: 048
  2. METFORMIN HCL [Suspect]
     Route: 048
  3. GLIPIZIDE [Suspect]
     Route: 048
  4. LISINOPRIL [Suspect]
  5. DULOXETINE [Suspect]
     Route: 048

REACTIONS (1)
  - COMPLETED SUICIDE [None]
